FAERS Safety Report 23930480 (Version 1)
Quarter: 2024Q2

REPORT INFORMATION
  Report Type: Spontaneous
  Country: US (occurrence: US)
  Receive Date: 20240602
  Receipt Date: 20240602
  Transmission Date: 20240716
  Serious: No
  Sender: FDA-Public Use
  Company Number: US-BEIGENE-BGN-2024-007628

PATIENT

DRUGS (2)
  1. BRUKINSA [Suspect]
     Active Substance: ZANUBRUTINIB
     Indication: Amyloidosis
     Dosage: 320 MILLIGRAM (4 CAPSULES A DAY)
     Route: 048
  2. BRUKINSA [Suspect]
     Active Substance: ZANUBRUTINIB
     Indication: Lymphoma

REACTIONS (10)
  - Haemorrhage subcutaneous [Unknown]
  - Vasculitis [Unknown]
  - Feeling hot [Unknown]
  - Peripheral swelling [Unknown]
  - Pain in extremity [Unknown]
  - Ecchymosis [Unknown]
  - Fall [Unknown]
  - Contusion [Unknown]
  - White blood cell count increased [Unknown]
  - Off label use [Unknown]

NARRATIVE: CASE EVENT DATE: 20240401
